FAERS Safety Report 10171070 (Version 1)
Quarter: 2014Q2

REPORT INFORMATION
  Report Type: Spontaneous
  Country: US (occurrence: None)
  Receive Date: 20140513
  Receipt Date: 20140513
  Transmission Date: 20141212
  Serious: No
  Sender: FDA-Public Use
  Company Number: None

PATIENT
  Age: 69 Year
  Sex: Female
  Weight: 63.6 kg

DRUGS (2)
  1. DEXTROAMPHETAMINE SULFATE [Suspect]
     Indication: NARCOLEPSY
     Dosage: 5 MG  8 PER DAY  ORAL
     Route: 048
     Dates: start: 20140415, end: 20140421
  2. DEXTROAMPHETAMINE SULFATE [Suspect]
     Indication: ATTENTION DEFICIT/HYPERACTIVITY DISORDER
     Dosage: 5 MG  8 PER DAY  ORAL
     Route: 048
     Dates: start: 20140415, end: 20140421

REACTIONS (2)
  - Product quality issue [None]
  - Product substitution issue [None]
